FAERS Safety Report 20054817 (Version 1)
Quarter: 2021Q4

REPORT INFORMATION
  Report Type: Spontaneous
  Country: US (occurrence: None)
  Receive Date: 20211110
  Receipt Date: 20211110
  Transmission Date: 20220303
  Serious: No
  Sender: FDA-Public Use
  Company Number: None

PATIENT
  Age: 64 Year
  Sex: Female

DRUGS (1)
  1. ENDARI [Suspect]
     Active Substance: GLUTAMINE
     Indication: Sickle cell trait
     Dosage: FREQUENCY : TWICE A DAY;?
     Route: 048
     Dates: start: 20210504

REACTIONS (2)
  - Nephropathy [None]
  - Renal impairment [None]

NARRATIVE: CASE EVENT DATE: 20211110
